FAERS Safety Report 16002304 (Version 1)
Quarter: 2019Q1

REPORT INFORMATION
  Report Type: Spontaneous
  Country: US (occurrence: US)
  Receive Date: 20190225
  Receipt Date: 20190225
  Transmission Date: 20190418
  Serious: No
  Sender: FDA-Public Use
  Company Number: US-BAUSCH-BL-2019-004363

PATIENT
  Age: 17 Year
  Sex: Female
  Weight: 27.24 kg

DRUGS (5)
  1. APRISO [Suspect]
     Active Substance: MESALAMINE
     Dosage: FOR 3-4 DAYS
     Route: 048
     Dates: start: 201812
  2. APRISO [Suspect]
     Active Substance: MESALAMINE
     Dosage: 3 CAPSULES DAILY BY MOUTH
     Route: 048
     Dates: start: 20190205
  3. PREDNISONE. [Concomitant]
     Active Substance: PREDNISONE
     Indication: PRODUCT USED FOR UNKNOWN INDICATION
  4. VITAMIN D [Concomitant]
     Active Substance: CHOLECALCIFEROL
     Indication: PRODUCT USED FOR UNKNOWN INDICATION
  5. APRISO [Suspect]
     Active Substance: MESALAMINE
     Indication: COLITIS ULCERATIVE
     Route: 048
     Dates: start: 201811, end: 2018

REACTIONS (4)
  - Abdominal pain [Not Recovered/Not Resolved]
  - Product use issue [Unknown]
  - Product residue present [Unknown]
  - Haematochezia [Unknown]

NARRATIVE: CASE EVENT DATE: 20190208
